FAERS Safety Report 10229638 (Version 1)
Quarter: 2014Q2

REPORT INFORMATION
  Report Type: Spontaneous
  Country: BR (occurrence: BR)
  Receive Date: 20140611
  Receipt Date: 20140611
  Transmission Date: 20141212
  Serious: Yes (Hospitalization)
  Sender: FDA-Public Use
  Company Number: BR-ASTRAZENECA-2014SE39209

PATIENT
  Age: 54 Year
  Sex: Male
  Weight: 84 kg

DRUGS (5)
  1. SELOZOK [Suspect]
     Route: 048
     Dates: start: 2009
  2. CRESTOR [Suspect]
     Indication: BLOOD CHOLESTEROL INCREASED
     Route: 048
     Dates: start: 2011
  3. ACTOS [Concomitant]
     Route: 048
     Dates: start: 2009
  4. DIAMICRON [Concomitant]
     Dosage: DAILY
     Route: 048
     Dates: start: 2009
  5. AAS INFANTIL [Concomitant]
     Route: 048
     Dates: start: 2009

REACTIONS (2)
  - Coronary artery occlusion [Recovered/Resolved]
  - Blood cholesterol increased [Recovering/Resolving]
